FAERS Safety Report 7044020-X (Version None)
Quarter: 2010Q4

REPORT INFORMATION
  Report Type: 
  Country: None (occurrence: None)
  Receive Date: 20101013
  Receipt Date: 20101009
  Transmission Date: 20110411
  Serious: Yes (Hospitalization, Other)
  Sender: FDA-Public Use
  Company Number: US-AMGEN-KDL444644

PATIENT
  Sex: Female

DRUGS (3)
  1. ENBREL [Suspect]
     Indication: RHEUMATOID ARTHRITIS
     Route: 058
  2. PREDNISONE [Concomitant]
  3. RITUXAN [Concomitant]

REACTIONS (7)
  - ARTHRALGIA [None]
  - DEAFNESS [None]
  - GASTRIC ULCER HAEMORRHAGE [None]
  - PAIN [None]
  - RESPIRATORY DISORDER [None]
  - SPINAL COLUMN STENOSIS [None]
  - VISION BLURRED [None]
